FAERS Safety Report 14628164 (Version 1)
Quarter: 2018Q1

REPORT INFORMATION
  Report Type: Spontaneous
  Country: US (occurrence: US)
  Receive Date: 20180312
  Receipt Date: 20180312
  Transmission Date: 20180509
  Serious: No
  Sender: FDA-Public Use
  Company Number: US-ALLERGAN-1801772US

PATIENT
  Sex: Female

DRUGS (2)
  1. ESTRACE [Suspect]
     Active Substance: ESTRADIOL
     Indication: ATROPHIC VULVOVAGINITIS
     Dosage: 2 G, QD
     Route: 067
     Dates: start: 20180104
  2. ESTRACE [Suspect]
     Active Substance: ESTRADIOL
     Dosage: 2 G, BI-WEEKLY
     Route: 067
     Dates: end: 20180110

REACTIONS (3)
  - Vulvovaginal pain [Not Recovered/Not Resolved]
  - Drug dose omission [Unknown]
  - Incorrect dose administered [Unknown]
